FAERS Safety Report 5894813-7 (Version None)
Quarter: 2008Q3

REPORT INFORMATION
  Report Type: 
  Country: None (occurrence: None)
  Receive Date: 20080924
  Receipt Date: 20080912
  Transmission Date: 20090109
  Serious: Yes (Other)
  Sender: FDA-Public Use
  Company Number: FR-SANOFI-SYNTHELABO-A01200811477

PATIENT
  Sex: Male

DRUGS (1)
  1. ELIGARD [Suspect]
     Indication: PROSTATE CANCER
     Dosage: 22.5 MG
     Route: 058

REACTIONS (4)
  - DELIRIUM [None]
  - DEPRESSION [None]
  - HOT FLUSH [None]
  - PERSECUTORY DELUSION [None]
